FAERS Safety Report 6846053-2 (Version None)
Quarter: 2010Q3

REPORT INFORMATION
  Report Type: 
  Country: None (occurrence: None)
  Receive Date: 20100715
  Receipt Date: 20071024
  Transmission Date: 20110219
  Serious: No
  Sender: FDA-Public Use
  Company Number: US-PFIZER INC-2007074024

PATIENT
  Sex: Male
  Weight: 67.1 kg

DRUGS (1)
  1. CHANTIX [Suspect]
     Indication: SMOKING CESSATION THERAPY
     Dates: start: 20070418, end: 20070801

REACTIONS (6)
  - CHONDROPATHY [None]
  - EPISTAXIS [None]
  - GINGIVAL BLEEDING [None]
  - NASAL DISCOMFORT [None]
  - RHINORRHOEA [None]
  - TOOTHACHE [None]
